FAERS Safety Report 25523366 (Version 1)
Quarter: 2025Q3

REPORT INFORMATION
  Report Type: Spontaneous
  Country: US (occurrence: US)
  Receive Date: 20250707
  Receipt Date: 20250707
  Transmission Date: 20251021
  Serious: Yes (Death, Hospitalization, Other)
  Sender: Haleon PLC
  Company Number: US-HALEON-2250899

PATIENT
  Age: 69 Year
  Sex: Male

DRUGS (1)
  1. CALCIUM [Suspect]
     Active Substance: CALCIUM
     Indication: Product used for unknown indication

REACTIONS (6)
  - Infection [Fatal]
  - Aortic annulus rupture [Unknown]
  - Cardiac failure [Unknown]
  - Polyuria [Unknown]
  - Prosthetic cardiac valve stenosis [Unknown]
  - Prosthetic cardiac valve regurgitation [Unknown]
